FAERS Safety Report 21151148 (Version 1)
Quarter: 2022Q3

REPORT INFORMATION
  Report Type: Spontaneous
  Country: NL (occurrence: NL)
  Receive Date: 20220730
  Receipt Date: 20220730
  Transmission Date: 20221026
  Serious: Yes (Other)
  Sender: FDA-Public Use
  Company Number: None

PATIENT
  Age: 62 Year
  Sex: Male
  Weight: 106 kg

DRUGS (2)
  1. METOPROLOL SUCCINATE [Suspect]
     Active Substance: METOPROLOL SUCCINATE
     Indication: Vascular graft
     Dosage: 200 MG (MILLIGRAMS), METOPROLOL TABLET MGA 200MG (SUCCINATE) / BRAND NAME NOT SPECIFIED, THERAPY END
     Dates: start: 20210527
  2. METOPROLOL SUCCINATE [Suspect]
     Active Substance: METOPROLOL SUCCINATE
     Dosage: REDUCTION TO 100 MG, FORM STRENGTH : 200 MG, UNIT DOSE: 100 MG, METOPROLOL TABLET MGA 200MG (SUCCINA

REACTIONS (1)
  - Erectile dysfunction [Recovering/Resolving]

NARRATIVE: CASE EVENT DATE: 20210528
